FAERS Safety Report 7694562-9 (Version None)
Quarter: 2011Q3

REPORT INFORMATION
  Report Type: 
  Country: None (occurrence: None)
  Receive Date: 20110819
  Receipt Date: 20110809
  Transmission Date: 20111222
  Serious: Yes (Hospitalization, Other)
  Sender: FDA-Public Use
  Company Number: PHHY2011US72026

PATIENT
  Age: 65 Year
  Sex: Female

DRUGS (1)
  1. PREDNISONE [Suspect]
     Indication: TEMPORAL ARTERITIS
     Dosage: 30 MG, UNK

REACTIONS (5)
  - DYSPNOEA [None]
  - PNEUMOCYSTIS JIROVECI PNEUMONIA [None]
  - COUGH [None]
  - ANAEMIA [None]
  - BRONCHOALVEOLAR LAVAGE [None]
